FAERS Safety Report 20895756 (Version 1)
Quarter: 2022Q2

REPORT INFORMATION
  Report Type: Report from Study
  Country: US (occurrence: US)
  Receive Date: 20220531
  Receipt Date: 20220531
  Transmission Date: 20220721
  Serious: Yes (Disabling, Other)
  Sender: FDA-Public Use
  Company Number: US-NOVARTISPH-NVSC2022US121022

PATIENT
  Sex: Male

DRUGS (1)
  1. ENTRESTO [Suspect]
     Active Substance: SACUBITRIL\VALSARTAN
     Indication: Product used for unknown indication
     Dosage: 1.5 DOSAGE FORM, BID (97/103 MG)
     Route: 065
     Dates: start: 202106

REACTIONS (2)
  - Autism spectrum disorder [Unknown]
  - Wrong technique in product usage process [Unknown]
